FAERS Safety Report 7888810-X (Version None)
Quarter: 2011Q4

REPORT INFORMATION
  Report Type: 
  Country: None (occurrence: None)
  Receive Date: 20111103
  Receipt Date: 20111028
  Transmission Date: 20120403
  Serious: Yes (Hospitalization, Other)
  Sender: FDA-Public Use
  Company Number: FR-PFIZER INC-2011202425

PATIENT
  Age: 17 Year
  Sex: Male

DRUGS (2)
  1. SULFASALAZINE [Suspect]
     Indication: CROHN'S DISEASE
  2. SULFASALAZINE [Suspect]
     Indication: COLITIS ULCERATIVE

REACTIONS (2)
  - HAEMORRHAGE [None]
  - TOXIC EPIDERMAL NECROLYSIS [None]
